FAERS Safety Report 23631713 (Version 1)
Quarter: 2024Q1

REPORT INFORMATION
  Report Type: Spontaneous
  Country: US (occurrence: None)
  Receive Date: 20240313
  Receipt Date: 20240313
  Transmission Date: 20240410
  Serious: Yes (Death, Hospitalization)
  Sender: FDA-Public Use
  Company Number: None

PATIENT
  Age: 82 Year
  Sex: Male

DRUGS (2)
  1. OFEV [Suspect]
     Active Substance: NINTEDANIB
     Indication: Idiopathic pulmonary fibrosis
     Dosage: FREQUENCY : DAILY;?
     Route: 048
     Dates: start: 20160930, end: 20230408
  2. OFEV [Suspect]
     Active Substance: NINTEDANIB
     Indication: Idiopathic pulmonary fibrosis
     Dosage: FREQUENCY : DAILY;?
     Route: 048
     Dates: start: 20160930, end: 20230408

REACTIONS (7)
  - Septic shock [None]
  - Urinary tract infection [None]
  - Escherichia bacteraemia [None]
  - SARS-CoV-2 test positive [None]
  - Haemodynamic instability [None]
  - Oxygen saturation decreased [None]
  - General physical health deterioration [None]

NARRATIVE: CASE EVENT DATE: 20230408
